FAERS Safety Report 4427594-4 (Version None)
Quarter: 2004Q3

REPORT INFORMATION
  Report Type: 
  Country: None (occurrence: None)
  Receive Date: 20040816
  Receipt Date: 20040816
  Transmission Date: 20050211
  Serious: Yes (Disabling, Other)
  Sender: FDA-Public Use
  Company Number: None

PATIENT
  Age: 61 Year
  Sex: Female
  Weight: 83.9154 kg

DRUGS (1)
  1. DMSO ADMINISTERED BY INTRAVENOUS DRIP (7 TIMES) [Suspect]
     Dosage: 1-1 1/2 HR DRIP [7 VISITS]
     Route: 042
     Dates: start: 20031001, end: 20031223

REACTIONS (9)
  - ABDOMINAL DISCOMFORT [None]
  - ARTHRALGIA [None]
  - FOOD ALLERGY [None]
  - MOBILITY DECREASED [None]
  - MUSCULOSKELETAL STIFFNESS [None]
  - MYALGIA [None]
  - NEOPLASM [None]
  - SLEEP DISORDER [None]
  - WEIGHT DECREASED [None]
